FAERS Safety Report 7488734-6 (Version None)
Quarter: 2011Q2

REPORT INFORMATION
  Report Type: 
  Country: None (occurrence: None)
  Receive Date: 20110511
  Receipt Date: 20110505
  Transmission Date: 20111010
  Serious: Yes (Hospitalization)
  Sender: FDA-Public Use
  Company Number: 2011AC000029

PATIENT
  Age: 56 Year
  Sex: Female
  Weight: 117.9352 kg

DRUGS (11)
  1. DILTIAZEM [Concomitant]
  2. DIGOXIN [Suspect]
     Indication: HEART RATE IRREGULAR
     Dosage: 0.250 MG; QD; PO
     Route: 048
     Dates: start: 20060801, end: 20080301
  3. PANTOPRAZOLE [Concomitant]
  4. SYNTHROID [Concomitant]
  5. WARFARIN SODIUM [Concomitant]
  6. ROBINUL [Concomitant]
  7. PREMARIN [Concomitant]
  8. DILAUDID [Concomitant]
  9. INSULIN [Concomitant]
  10. CIPROFLOXACIN [Concomitant]
  11. ATROPINE [Concomitant]

REACTIONS (17)
  - ATRIAL THROMBOSIS [None]
  - AORTIC VALVE DISEASE [None]
  - DYSLIPIDAEMIA [None]
  - ATRIAL SEPTAL DEFECT [None]
  - MYOCARDIAL ISCHAEMIA [None]
  - MITRAL VALVE INCOMPETENCE [None]
  - TRICUSPID VALVE INCOMPETENCE [None]
  - AORTIC ARTERIOSCLEROSIS [None]
  - HEART RATE DECREASED [None]
  - PULMONARY HYPERTENSION [None]
  - CARDIAC FAILURE CONGESTIVE [None]
  - ATRIAL FIBRILLATION [None]
  - HYPOTHYROIDISM [None]
  - MYOCARDIAL INFARCTION [None]
  - MITRAL VALVE STENOSIS [None]
  - AORTIC VALVE INCOMPETENCE [None]
  - PULMONARY VALVE INCOMPETENCE [None]
